FAERS Safety Report 24090121 (Version 2)
Quarter: 2024Q4

REPORT INFORMATION
  Report Type: Report from Study
  Country: US (occurrence: US)
  Receive Date: 20240715
  Receipt Date: 20241008
  Transmission Date: 20250115
  Serious: No
  Sender: TG THERAPEUTICS
  Company Number: US-TG THERAPEUTICS INC.-TGT003698

PATIENT

DRUGS (1)
  1. UBLITUXIMAB [Suspect]
     Active Substance: UBLITUXIMAB
     Indication: Multiple sclerosis
     Dosage: UNK
     Route: 042
     Dates: start: 20240610, end: 20240610

REACTIONS (4)
  - Abdominal discomfort [Unknown]
  - Vomiting [Unknown]
  - Poor quality sleep [Unknown]
  - Malaise [Unknown]

NARRATIVE: CASE EVENT DATE: 20240613
